FAERS Safety Report 4604064-1 (Version None)
Quarter: 2005Q1

REPORT INFORMATION
  Report Type: 
  Country: None (occurrence: None)
  Receive Date: 20050308
  Receipt Date: 20050308
  Transmission Date: 20050727
  Serious: Yes (Death)
  Sender: FDA-Public Use
  Company Number: None

PATIENT
  Age: 38 Year
  Sex: Female

DRUGS (1)
  1. DEPOCYT [Suspect]

REACTIONS (6)
  - ENCEPHALITIS [None]
  - ENCEPHALOPATHY [None]
  - HYPOVENTILATION [None]
  - MENINGITIS [None]
  - NEOPLASM MALIGNANT [None]
  - RESPIRATORY ARREST [None]
